FAERS Safety Report 7734066-8 (Version None)
Quarter: 2011Q3

REPORT INFORMATION
  Report Type: 
  Country: None (occurrence: None)
  Receive Date: 20110906
  Receipt Date: 20110906
  Transmission Date: 20111222
  Serious: Yes (Hospitalization)
  Sender: FDA-Public Use
  Company Number: None

PATIENT
  Sex: Male
  Weight: 85 kg

DRUGS (3)
  1. LEXAPRO [Concomitant]
  2. CISPLATIN [Suspect]
     Dosage: 200 MG
     Dates: end: 20070820
  3. TYLENOL-500 [Concomitant]

REACTIONS (23)
  - THROMBOCYTOPENIA [None]
  - PYREXIA [None]
  - MUCOSAL INFLAMMATION [None]
  - SINUS CONGESTION [None]
  - STOMATITIS [None]
  - ORAL DISORDER [None]
  - DRUG HYPERSENSITIVITY [None]
  - RED BLOOD CELL COUNT DECREASED [None]
  - VOMITING [None]
  - LOBAR PNEUMONIA [None]
  - COUGH [None]
  - ANXIETY [None]
  - BLOOD MAGNESIUM DECREASED [None]
  - NAUSEA [None]
  - BLOOD PHOSPHORUS DECREASED [None]
  - WHITE BLOOD CELL COUNT DECREASED [None]
  - LUNG INFILTRATION [None]
  - ORAL PAIN [None]
  - DEHYDRATION [None]
  - INFLUENZA [None]
  - INFECTION [None]
  - HAEMOGLOBIN DECREASED [None]
  - LYMPHOPENIA [None]
